FAERS Safety Report 25172028 (Version 1)
Quarter: 2025Q2

REPORT INFORMATION
  Report Type: Spontaneous
  Country: US (occurrence: US)
  Receive Date: 20250408
  Receipt Date: 20250408
  Transmission Date: 20250717
  Serious: Yes (Hospitalization, Other)
  Sender: RANBAXY
  Company Number: US-SUN PHARMACEUTICAL INDUSTRIES LTD-2025R1-502359

PATIENT
  Age: 55 Year
  Sex: Female

DRUGS (1)
  1. KETOROLAC [Suspect]
     Active Substance: KETOROLAC TROMETHAMINE
     Indication: Hereditary haemorrhagic telangiectasia
     Route: 030

REACTIONS (3)
  - Arthralgia [Unknown]
  - Haematuria [Unknown]
  - Joint space narrowing [Unknown]
